FAERS Safety Report 12187590 (Version 5)
Quarter: 2017Q1

REPORT INFORMATION
  Report Type: Spontaneous
  Country: US (occurrence: US)
  Receive Date: 20160317
  Receipt Date: 20170106
  Transmission Date: 20170428
  Serious: No
  Sender: FDA-Public Use
  Company Number: US-ASTRAZENECA-2016SE26756

PATIENT
  Age: 24580 Day
  Sex: Female

DRUGS (15)
  1. VITAMIN C [Concomitant]
     Active Substance: ASCORBIC ACID
  2. OMEGA 3 [Concomitant]
     Active Substance: OMEGA-3 FATTY ACIDS
  3. XGEVA [Concomitant]
     Active Substance: DENOSUMAB
  4. FOLIC ACID. [Concomitant]
     Active Substance: FOLIC ACID
  5. ASPIRIN. [Concomitant]
     Active Substance: ASPIRIN
  6. MAGNESIUM [Concomitant]
     Active Substance: MAGNESIUM
  7. TAGRISSO [Suspect]
     Active Substance: OSIMERTINIB
     Indication: LUNG CARCINOMA CELL TYPE UNSPECIFIED RECURRENT
     Route: 048
     Dates: start: 20160219
  8. PROTEIN POWDER [Concomitant]
  9. LISINOPRIL. [Suspect]
     Active Substance: LISINOPRIL
     Route: 048
  10. ZANTAC [Concomitant]
     Active Substance: RANITIDINE HYDROCHLORIDE
  11. MIRALAX [Concomitant]
     Active Substance: POLYETHYLENE GLYCOL 3350
  12. KREEL OIL [Concomitant]
  13. CALCIUM [Concomitant]
     Active Substance: CALCIUM
  14. LORAZEPAM. [Concomitant]
     Active Substance: LORAZEPAM
  15. SENNA [Concomitant]
     Active Substance: SENNA LEAF\SENNOSIDES\SENNOSIDES A AND B

REACTIONS (8)
  - Acne [Unknown]
  - Rash [Unknown]
  - Dry eye [Recovered/Resolved]
  - Muscle spasms [Not Recovered/Not Resolved]
  - Dry skin [Unknown]
  - Oropharyngeal pain [Unknown]
  - Dry throat [Unknown]
  - Middle insomnia [Unknown]

NARRATIVE: CASE EVENT DATE: 20160301
